FAERS Safety Report 12473721 (Version 2)
Quarter: 2016Q3

REPORT INFORMATION
  Report Type: Spontaneous
  Country: BR (occurrence: BR)
  Receive Date: 20160616
  Receipt Date: 20160811
  Transmission Date: 20161109
  Serious: Yes (Other)
  Sender: FDA-Public Use
  Company Number: BR-BRISTOL-MYERS SQUIBB COMPANY-BMS-2016-046444

PATIENT
  Age: 73 Year
  Sex: Male

DRUGS (1)
  1. ELIQUIS [Suspect]
     Active Substance: APIXABAN
     Indication: CEREBROVASCULAR ACCIDENT PROPHYLAXIS
     Dosage: 5 MG, BID
     Route: 065

REACTIONS (5)
  - Thrombosis [Unknown]
  - Hypertension [Unknown]
  - Coronary artery disease [Unknown]
  - Dyslipidaemia [Unknown]
  - Vena cava filter insertion [Unknown]
